FAERS Safety Report 7260540-7 (Version None)
Quarter: 2011Q1

REPORT INFORMATION
  Report Type: 
  Country: None (occurrence: None)
  Receive Date: 20110130
  Receipt Date: 20101220
  Transmission Date: 20110831
  Serious: No
  Sender: FDA-Public Use
  Company Number: US-ABBOTT-10P-163-0692703-00

PATIENT
  Sex: Female
  Weight: 86.26 kg

DRUGS (14)
  1. METHOTREXATE [Suspect]
     Indication: PRODUCT USED FOR UNKNOWN INDICATION
     Dates: start: 20091101, end: 20100301
  2. ATENOLOL [Concomitant]
     Indication: BLOOD PRESSURE
  3. NIACIN [Concomitant]
     Indication: BLOOD CHOLESTEROL
  4. OMEPRAZOLE [Concomitant]
     Indication: GASTROOESOPHAGEAL REFLUX DISEASE
  5. ASA [Concomitant]
     Indication: PRODUCT USED FOR UNKNOWN INDICATION
  6. HUMIRA [Suspect]
     Indication: RHEUMATOID ARTHRITIS
     Dates: start: 20091101, end: 20100301
  7. HUMIRA [Suspect]
     Dates: start: 20100501, end: 20101101
  8. METHOTREXATE [Suspect]
     Dates: start: 20100501, end: 20101112
  9. QUINAPRIL [Concomitant]
     Indication: BLOOD PRESSURE
  10. SIMVASTATIN [Concomitant]
     Indication: BLOOD CHOLESTEROL
  11. SYNTHROID [Concomitant]
     Indication: PRODUCT USED FOR UNKNOWN INDICATION
  12. FOLIC ACID [Concomitant]
     Indication: PRODUCT USED FOR UNKNOWN INDICATION
  13. CAL +D [Concomitant]
     Indication: PRODUCT USED FOR UNKNOWN INDICATION
  14. M.V.I. [Concomitant]
     Indication: PRODUCT USED FOR UNKNOWN INDICATION

REACTIONS (5)
  - SINUS CONGESTION [None]
  - PYREXIA [None]
  - SINUSITIS [None]
  - NASOPHARYNGITIS [None]
  - NASAL CONGESTION [None]
